FAERS Safety Report 22259911 (Version 1)
Quarter: 2023Q2

REPORT INFORMATION
  Report Type: Spontaneous
  Country: US (occurrence: US)
  Receive Date: 20230427
  Receipt Date: 20230427
  Transmission Date: 20230721
  Serious: Yes (Hospitalization)
  Sender: FDA-Public Use
  Company Number: US-ALLERGAN-2233454US

PATIENT
  Age: 77 Year
  Sex: Female
  Weight: 77.11 kg

DRUGS (6)
  1. RISEDRONATE SODIUM [Suspect]
     Active Substance: RISEDRONATE SODIUM
     Indication: Osteopenia
     Dosage: 150 MG, Q MONTH
     Dates: start: 20220801
  2. LEVOTHYROXINE [Concomitant]
     Active Substance: LEVOTHYROXINE
     Indication: Thyroid disorder
  3. FUROSEMIDE [Concomitant]
     Active Substance: FUROSEMIDE
     Indication: Polyuria
     Dosage: 20MG - NOW TAKING 1/2 OF TABLET DAILY
  4. CALCIUM [Concomitant]
     Active Substance: CALCIUM
     Indication: Product used for unknown indication
  5. VITAMIN D NOS [Concomitant]
     Active Substance: VITAMIN D NOS
     Indication: Product used for unknown indication
  6. FISH OIL [Concomitant]
     Active Substance: FISH OIL
     Indication: Product used for unknown indication

REACTIONS (6)
  - Back pain [Not Recovered/Not Resolved]
  - Blood pressure decreased [Unknown]
  - Dyspnoea [Unknown]
  - Feeling abnormal [Unknown]
  - Dizziness [Unknown]
  - Pain [Unknown]

NARRATIVE: CASE EVENT DATE: 20220801
